FAERS Safety Report 12850594 (Version 1)
Quarter: 2016Q4

REPORT INFORMATION
  Report Type: Report from Study
  Country: None (occurrence: US)
  Receive Date: 20161014
  Receipt Date: 20161014
  Transmission Date: 20170207
  Serious: Yes (Hospitalization, Other)
  Sender: FDA-Public Use
  Company Number: US-ABBVIE-16P-163-1751080-00

PATIENT
  Age: 54 Year
  Sex: Female
  Weight: 46.31 kg

DRUGS (7)
  1. CREON [Suspect]
     Active Substance: PANCRELIPASE AMYLASE\PANCRELIPASE LIPASE\PANCRELIPASE PROTEASE
     Indication: PANCREATITIS
     Dosage: 3 CAPSULE WITH MEALS AND ONE CAPSULE WITH A SNACK.
     Route: 048
     Dates: start: 201510
  2. METHADONE [Concomitant]
     Active Substance: METHADONE HYDROCHLORIDE
     Indication: PAIN
  3. PERCOCET [Concomitant]
     Active Substance: ACETAMINOPHEN\OXYCODONE HYDROCHLORIDE
     Indication: PAIN
  4. METHADONE [Concomitant]
     Active Substance: METHADONE HYDROCHLORIDE
     Indication: PANCREATITIS
     Dates: start: 201610
  5. CARVEDILOL. [Concomitant]
     Active Substance: CARVEDILOL
     Indication: HYPERTENSION
  6. PERCOCET [Concomitant]
     Active Substance: ACETAMINOPHEN\OXYCODONE HYDROCHLORIDE
     Indication: PANCREATITIS
     Dates: start: 201610
  7. AMLODIPINE [Concomitant]
     Active Substance: AMLODIPINE BESYLATE
     Indication: HYPERTENSION

REACTIONS (17)
  - Thyroid hormones increased [Recovered/Resolved]
  - Haematocrit decreased [Not Recovered/Not Resolved]
  - Nausea [Recovered/Resolved]
  - Thrombocytopenia [Unknown]
  - Gastritis [Not Recovered/Not Resolved]
  - Hyperhidrosis [Recovering/Resolving]
  - Haematemesis [Recovered/Resolved]
  - Fatigue [Not Recovered/Not Resolved]
  - Leukopenia [Unknown]
  - Metastatic neoplasm [Unknown]
  - Haemoglobin decreased [Not Recovered/Not Resolved]
  - Arthralgia [Not Recovered/Not Resolved]
  - Splenic vein thrombosis [Not Recovered/Not Resolved]
  - Plasma cell myeloma [Unknown]
  - Anaemia [Not Recovered/Not Resolved]
  - Small intestine ulcer [Recovered/Resolved]
  - White blood cell count decreased [Unknown]

NARRATIVE: CASE EVENT DATE: 201512
